FAERS Safety Report 8211448-1 (Version None)
Quarter: 2012Q1

REPORT INFORMATION
  Report Type: 
  Country: None (occurrence: None)
  Receive Date: 20120315
  Receipt Date: 20120228
  Transmission Date: 20120608
  Serious: No
  Sender: FDA-Public Use
  Company Number: US-BAYER-2012-020468

PATIENT
  Age: 90 Year
  Sex: Female
  Weight: 56 kg

DRUGS (8)
  1. ASPIRIN [Concomitant]
     Route: 048
  2. AMLODIPINE [Concomitant]
  3. CALCIUM CARBONATE [Concomitant]
  4. METOPROLOL SUCCINATE [Concomitant]
  5. NORVASC [Concomitant]
  6. MULTI-VITAMINS [Concomitant]
  7. ALEVE (CAPLET) [Suspect]
     Indication: HEADACHE
     Dosage: 1 DF, PRN
     Route: 048
     Dates: start: 20120201
  8. HYDROCHLOROTHIAZIDE [Concomitant]

REACTIONS (2)
  - THERAPEUTIC RESPONSE DELAYED [None]
  - THERAPEUTIC RESPONSE DECREASED [None]
